FAERS Safety Report 21936416 (Version 1)
Quarter: 2023Q1

REPORT INFORMATION
  Report Type: Spontaneous
  Country: US (occurrence: US)
  Receive Date: 20230201
  Receipt Date: 20230201
  Transmission Date: 20230418
  Serious: No
  Sender: FDA-Public Use
  Company Number: US-INCYTE CORPORATION-2020IN011400

PATIENT

DRUGS (1)
  1. PEMAZYRE [Suspect]
     Active Substance: PEMIGATINIB
     Dosage: 13.5 MILLIGRAM 14 DAYS ON AND 7 DAYS OFF
     Route: 048

REACTIONS (4)
  - Vomiting [Unknown]
  - Hyperphosphataemia [Unknown]
  - Nausea [Unknown]
  - Fatigue [Unknown]
